FAERS Safety Report 14972617 (Version 1)
Quarter: 2018Q2

REPORT INFORMATION
  Report Type: Spontaneous
  Country: US (occurrence: US)
  Receive Date: 20180605
  Receipt Date: 20180605
  Transmission Date: 20180711
  Serious: Yes (Other)
  Sender: FDA-Public Use
  Company Number: US-PFIZER INC-2018223476

PATIENT

DRUGS (1)
  1. PREMARIN [Suspect]
     Active Substance: ESTROGENS, CONJUGATED
     Indication: VULVOVAGINAL DRYNESS
     Dosage: UNK

REACTIONS (3)
  - Muscle spasms [Recovering/Resolving]
  - Pain [Recovering/Resolving]
  - Vaginal haemorrhage [Recovering/Resolving]
